FAERS Safety Report 4585385-8 (Version None)
Quarter: 2005Q1

REPORT INFORMATION
  Report Type: 
  Country: None (occurrence: None)
  Receive Date: 20050214
  Receipt Date: 20041029
  Transmission Date: 20050727
  Serious: Yes (Death)
  Sender: FDA-Public Use
  Company Number: 9157

PATIENT
  Age: 84 Year
  Sex: Male

DRUGS (6)
  1. AMIODARONE [Suspect]
     Indication: ATRIAL FIBRILLATION
     Dosage: 200 MG FREQ UNK PO
     Route: 048
     Dates: start: 20040201, end: 20040727
  2. AMIODARONE [Suspect]
     Indication: VENTRICULAR TACHYCARDIA
     Dosage: 200 MG FREQ UNK PO
     Route: 048
     Dates: start: 20040201, end: 20040727
  3. FRUSEMIDE [Concomitant]
  4. WARFARIN SODIUM [Concomitant]
  5. LEVODOPA BENSERAZIDE HYDROCHLO [Concomitant]
  6. RAMIPRIL [Concomitant]

REACTIONS (15)
  - ATELECTASIS [None]
  - BLOOD CREATININE INCREASED [None]
  - BLOOD SODIUM DECREASED [None]
  - BRONCHIECTASIS [None]
  - CARDIAC ARREST [None]
  - HAEMOGLOBIN DECREASED [None]
  - HYPOXIA [None]
  - INTERSTITIAL LUNG DISEASE [None]
  - MITRAL VALVE INCOMPETENCE [None]
  - MITRAL VALVE PROLAPSE [None]
  - PLATELET COUNT INCREASED [None]
  - PULMONARY FIBROSIS [None]
  - SUBDURAL HAEMATOMA [None]
  - TRICUSPID VALVE INCOMPETENCE [None]
  - WHITE BLOOD CELL COUNT INCREASED [None]
